FAERS Safety Report 15730167 (Version 1)
Quarter: 2018Q4

REPORT INFORMATION
  Report Type: Spontaneous
  Country: US (occurrence: US)
  Receive Date: 20181217
  Receipt Date: 20181217
  Transmission Date: 20190205
  Serious: Yes (Other)
  Sender: FDA-Public Use
  Company Number: US-SA-2018SA336173

PATIENT

DRUGS (2)
  1. TAXOTERE [Suspect]
     Active Substance: DOCETAXEL
     Dosage: UNK UNK, UNK
     Route: 042
     Dates: start: 20090415, end: 20090415
  2. TAXOTERE [Suspect]
     Active Substance: DOCETAXEL
     Dosage: UNK UNK, UNK
     Route: 042
     Dates: start: 20090728, end: 20090728

REACTIONS (6)
  - Impaired quality of life [Unknown]
  - Emotional distress [Unknown]
  - Anxiety [Unknown]
  - Injury [Unknown]
  - Alopecia [Not Recovered/Not Resolved]
  - Pain [Unknown]
